FAERS Safety Report 5122609-2 (Version None)
Quarter: 2006Q4

REPORT INFORMATION
  Report Type: 
  Country: None (occurrence: None)
  Receive Date: 20061004
  Receipt Date: 20060922
  Transmission Date: 20070319
  Serious: Yes (Other)
  Sender: FDA-Public Use
  Company Number: CHNY2006AU02669

PATIENT
  Age: 41 Year
  Sex: Female

DRUGS (2)
  1. ALPHAPHARM QUITX (NCH) (NICOTINE) TRANS-THERAPEUTIC-SYSTEM [Suspect]
     Dosage: SEE IMAGE
     Route: 062
     Dates: start: 20060808, end: 20060904
  2. ALPHAPHARM QUITX (NCH) (NICOTINE) TRANS-THERAPEUTIC-SYSTEM [Suspect]
     Dosage: SEE IMAGE
     Route: 062
     Dates: start: 20060905, end: 20060918

REACTIONS (2)
  - DYSPNOEA [None]
  - PULMONARY FUNCTION TEST DECREASED [None]
